FAERS Safety Report 4554335-2 (Version None)
Quarter: 2005Q1

REPORT INFORMATION
  Report Type: 
  Country: None (occurrence: None)
  Receive Date: 20041230
  Receipt Date: 20040716
  Transmission Date: 20050727
  Serious: Yes (Hospitalization)
  Sender: FDA-Public Use
  Company Number: 04-07-1026

PATIENT
  Age: 48 Year
  Sex: Female

DRUGS (2)
  1. CLOZAPINE [Suspect]
     Indication: SCHIZOPHRENIA, PARANOID TYPE
     Dosage: 250 MG QD ORAL
     Route: 048
     Dates: start: 20030401
  2. LITHIUM CARBONATE [Suspect]

REACTIONS (2)
  - DISORIENTATION [None]
  - DIZZINESS [None]
